FAERS Safety Report 5767389-2 (Version None)
Quarter: 2008Q2

REPORT INFORMATION
  Report Type: 
  Country: None (occurrence: None)
  Receive Date: 20080612
  Receipt Date: 20080609
  Transmission Date: 20081010
  Serious: No
  Sender: FDA-Public Use
  Company Number: B0523988A

PATIENT
  Age: 76 Year
  Sex: Female

DRUGS (12)
  1. SEREVENT [Suspect]
     Indication: ASTHMA
     Dosage: 50MCG TWICE PER DAY
     Route: 055
     Dates: start: 20080414, end: 20080501
  2. FLUTIDE DISKUS [Concomitant]
     Indication: ASTHMA
     Route: 055
  3. PREDNISOLONE [Concomitant]
     Indication: ASTHMA
     Route: 065
  4. THEOLONG [Concomitant]
     Indication: ASTHMA
     Route: 048
  5. ONON [Concomitant]
     Route: 048
  6. ZYRTEC [Concomitant]
     Route: 048
  7. UNKNOWN DRUG [Concomitant]
     Route: 045
  8. MUCOSOLVAN [Concomitant]
     Route: 048
  9. FAMOTIDINE [Concomitant]
     Indication: HYPERTENSION
     Route: 048
  10. CALSLOT [Concomitant]
     Indication: HYPERTENSION
     Route: 048
  11. TANATRIL [Concomitant]
     Route: 048
  12. MAGNESIUM OXIDE [Concomitant]
     Indication: HYPERTENSION
     Route: 048

REACTIONS (3)
  - BLOOD PRESSURE INCREASED [None]
  - OEDEMA PERIPHERAL [None]
  - SOMNOLENCE [None]
